FAERS Safety Report 10681731 (Version 1)
Quarter: 2014Q4

REPORT INFORMATION
  Report Type: Report from Study
  Country: NL (occurrence: NL)
  Receive Date: 20141230
  Receipt Date: 20141230
  Transmission Date: 20150529
  Serious: Yes (Hospitalization)
  Sender: FDA-Public Use
  Company Number: NL-ROCHE-1510726

PATIENT
  Age: 75 Year
  Sex: Male
  Weight: 57 kg

DRUGS (31)
  1. TOCILIZUMAB [Suspect]
     Active Substance: TOCILIZUMAB
     Indication: RHEUMATOID ARTHRITIS
     Dosage: DATE OF RECENT DOSE PRIOR TO SAE 13/MAR/2013
     Route: 042
     Dates: start: 20110124
  2. METHOTREXATE [Concomitant]
     Active Substance: METHOTREXATE
     Dosage: EVERY TUESDAY 1 INJECTION 0.5 ML
     Route: 058
     Dates: start: 20130416
  3. ALENDRONIC ACID [Concomitant]
     Active Substance: ALENDRONIC ACID
     Route: 048
  4. TOCILIZUMAB [Suspect]
     Active Substance: TOCILIZUMAB
     Route: 042
     Dates: start: 20140305
  5. TOCILIZUMAB [Suspect]
     Active Substance: TOCILIZUMAB
     Route: 042
     Dates: start: 20140122
  6. TOCILIZUMAB [Suspect]
     Active Substance: TOCILIZUMAB
     Route: 042
     Dates: start: 20141120
  7. CHOLECALCIFEROL [Concomitant]
     Active Substance: CHOLECALCIFEROL
     Dosage: 50000 IU/ML SUNDAY AND THURSDAY
     Route: 065
  8. ALFUZOSINE [Concomitant]
     Active Substance: ALFUZOSIN HYDROCHLORIDE
     Route: 065
  9. NAPROXEN. [Concomitant]
     Active Substance: NAPROXEN
     Route: 065
  10. CIPROFLOXACINE [Concomitant]
     Active Substance: CIPROFLOXACIN
     Route: 048
  11. LACTULOSE. [Concomitant]
     Active Substance: LACTULOSE
     Route: 048
  12. ENALAPRIL [Concomitant]
     Active Substance: ENALAPRIL
     Route: 065
  13. CALCICHEW [Concomitant]
     Active Substance: CALCIUM CARBONATE
     Route: 048
  14. ACETYLSALICYLIC ACID [Concomitant]
     Active Substance: ASPIRIN
     Route: 048
  15. PANTOPRAZOLE [Concomitant]
     Active Substance: PANTOPRAZOLE SODIUM
     Route: 048
  16. PARIET [Concomitant]
     Active Substance: RABEPRAZOLE SODIUM
     Route: 065
  17. CALCICHEW [Concomitant]
     Active Substance: CALCIUM CARBONATE
     Route: 048
  18. FOSINOPRIL [Concomitant]
     Active Substance: FOSINOPRIL
     Route: 048
  19. CLOPIDOGREL [Concomitant]
     Active Substance: CLOPIDOGREL BISULFATE
  20. DURATEARS [Concomitant]
     Active Substance: MINERAL OIL EMULSION\PETROLATUM
  21. TICAGRELOR [Concomitant]
     Active Substance: TICAGRELOR
     Route: 048
     Dates: start: 20140410
  22. TOCILIZUMAB [Suspect]
     Active Substance: TOCILIZUMAB
     Route: 042
     Dates: start: 20141217
  23. AVODART [Concomitant]
     Active Substance: DUTASTERIDE
     Route: 065
  24. METAMUCIL [Concomitant]
     Active Substance: PLANTAGO SEED
  25. OXYNORM [Concomitant]
     Active Substance: OXYCODONE HYDROCHLORIDE
     Route: 065
  26. PROMETHAZINE [Concomitant]
     Active Substance: PROMETHAZINE\PROMETHAZINE HYDROCHLORIDE
     Route: 048
  27. FUROSEMIDE. [Concomitant]
     Active Substance: FUROSEMIDE
     Route: 048
  28. FOLIC ACID. [Concomitant]
     Active Substance: FOLIC ACID
     Dosage: TWO DAY REST, QD, ONE DAY REST
     Route: 048
  29. SIMVASTATINE [Concomitant]
     Active Substance: SIMVASTATIN
     Route: 048
     Dates: start: 20140410
  30. FINASTERIDE. [Concomitant]
     Active Substance: FINASTERIDE
     Route: 048
  31. FRAXIPARIN [Concomitant]
     Active Substance: NADROPARIN CALCIUM

REACTIONS (4)
  - Subdural haematoma [Recovered/Resolved]
  - Cellulitis [Recovered/Resolved]
  - Periprosthetic fracture [Recovered/Resolved]
  - Myocardial infarction [Recovered/Resolved]

NARRATIVE: CASE EVENT DATE: 20130412
